FAERS Safety Report 5034947-2 (Version None)
Quarter: 2006Q2

REPORT INFORMATION
  Report Type: 
  Country: None (occurrence: None)
  Receive Date: 20060622
  Receipt Date: 20060622
  Transmission Date: 20061013
  Serious: Yes (Hospitalization)
  Sender: FDA-Public Use
  Company Number: None

PATIENT
  Age: 66 Year
  Sex: Female
  Weight: 57.3 kg

DRUGS (4)
  1. TOPOTECAN 1MG/ML GLAXO-SMITH KLINE [Suspect]
     Indication: DISEASE RECURRENCE
     Dosage: 3.5 MG/M2 WEEKLY X 3 IV DRIP
     Route: 041
     Dates: start: 20060511, end: 20060615
  2. TOPOTECAN 1MG/ML GLAXO-SMITH KLINE [Suspect]
     Indication: OVARIAN CANCER
     Dosage: 3.5 MG/M2 WEEKLY X 3 IV DRIP
     Route: 041
     Dates: start: 20060511, end: 20060615
  3. TAXOTERE [Suspect]
     Indication: DISEASE RECURRENCE
     Dosage: 30 MG/ML WEEKLY X 3 IV DRIP
     Route: 041
     Dates: start: 20060511, end: 20060615
  4. TAXOTERE [Suspect]
     Indication: OVARIAN CANCER
     Dosage: 30 MG/ML WEEKLY X 3 IV DRIP
     Route: 041
     Dates: start: 20060511, end: 20060615

REACTIONS (2)
  - ABDOMINAL DISTENSION [None]
  - ASCITES [None]
